FAERS Safety Report 6371602-0 (Version None)
Quarter: 2009Q3

REPORT INFORMATION
  Report Type: 
  Country: None (occurrence: None)
  Receive Date: 20090923
  Receipt Date: 20080219
  Transmission Date: 20100115
  Serious: Yes (Hospitalization, Other)
  Sender: FDA-Public Use
  Company Number: US-ASTRAZENECA-2007UW19007

PATIENT
  Age: 13245 Day
  Sex: Male
  Weight: 106.6 kg

DRUGS (18)
  1. SEROQUEL [Suspect]
     Indication: BIPOLAR DISORDER
     Route: 048
     Dates: start: 19980116, end: 20010101
  2. SEROQUEL [Suspect]
     Indication: SCHIZOPHRENIA
     Route: 048
     Dates: start: 19980116, end: 20010101
  3. SEROQUEL [Suspect]
     Indication: ANXIETY
     Route: 048
     Dates: start: 19980116, end: 20010101
  4. SEROQUEL [Suspect]
     Dosage: 50 - 100 MG
     Route: 048
     Dates: start: 19990204
  5. SEROQUEL [Suspect]
     Dosage: 50 - 100 MG
     Route: 048
     Dates: start: 19990204
  6. SEROQUEL [Suspect]
     Dosage: 50 - 100 MG
     Route: 048
     Dates: start: 19990204
  7. RISPERDAL [Concomitant]
     Indication: DEPRESSION
     Dates: start: 19980101
  8. ZYPREXA [Concomitant]
     Indication: DEPRESSION
  9. ZYPREXA [Concomitant]
     Indication: ANXIETY
  10. HALDOL [Concomitant]
     Dates: start: 19780101
  11. STELAZINE [Concomitant]
     Dates: start: 19780101
  12. THORAZINE [Concomitant]
     Dates: start: 19780101
  13. BUSPAR [Concomitant]
     Route: 048
     Dates: start: 19990204
  14. REMERON [Concomitant]
     Route: 048
     Dates: start: 19990825
  15. AMBIEN [Concomitant]
     Indication: INSOMNIA
     Route: 048
     Dates: start: 20000212
  16. TRAZODONE [Concomitant]
     Route: 048
     Dates: start: 20020326
  17. TEGRETOL [Concomitant]
     Route: 048
     Dates: start: 20020326
  18. WELLBUTRIN SR [Concomitant]
     Route: 048
     Dates: start: 20030303

REACTIONS (5)
  - DIABETES MELLITUS [None]
  - DIABETIC COMA [None]
  - HYPERGLYCAEMIA [None]
  - KETOACIDOSIS [None]
  - TYPE 1 DIABETES MELLITUS [None]
